FAERS Safety Report 9904098 (Version 1)
Quarter: 2014Q1

REPORT INFORMATION
  Report Type: Spontaneous
  Country: US (occurrence: US)
  Receive Date: 20140218
  Receipt Date: 20140218
  Transmission Date: 20141002
  Serious: No
  Sender: FDA-Public Use
  Company Number: US-BIOGENIDEC-2014BI012918

PATIENT
  Sex: Female

DRUGS (3)
  1. TECFIDERA [Suspect]
     Indication: MULTIPLE SCLEROSIS
     Route: 048
  2. SERTRALINE HCL [Concomitant]
  3. COPAXONE [Concomitant]

REACTIONS (4)
  - Nasopharyngitis [Unknown]
  - Chills [Unknown]
  - Flushing [Unknown]
  - Pruritus [Unknown]
